FAERS Safety Report 18552773 (Version 2)
Quarter: 2020Q4

REPORT INFORMATION
  Report Type: Spontaneous
  Country: CN (occurrence: CN)
  Receive Date: 20201127
  Receipt Date: 20201127
  Transmission Date: 20210114
  Serious: Yes (Death, Other)
  Sender: FDA-Public Use
  Company Number: CN-JIANGSU HENGRUI MEDICINE CO., LTD.-2096355

PATIENT
  Age: 53 Year
  Sex: Female

DRUGS (7)
  1. DOXORUBICIN [Suspect]
     Active Substance: DOXORUBICIN
  2. BLEOMYCIN [Suspect]
     Active Substance: BLEOMYCIN SULFATE
  3. DACARBAZINE. [Suspect]
     Active Substance: DACARBAZINE
  4. VINBLASTINE [Suspect]
     Active Substance: VINBLASTINE
  5. IFOSFAMIDE. [Suspect]
     Active Substance: IFOSFAMIDE
  6. IMIPENEM [Concomitant]
     Active Substance: IMIPENEM
  7. OXALIPLATIN INJECTION USP, 5 MG/ML, PACKAGED IN 50 MG/10 ML AND 100 MG [Suspect]
     Active Substance: OXALIPLATIN
     Indication: MALIGNANT SPLENIC NEOPLASM

REACTIONS (2)
  - Hepatic failure [Fatal]
  - Product use in unapproved indication [Unknown]
